FAERS Safety Report 6387259-9 (Version None)
Quarter: 2009Q3

REPORT INFORMATION
  Report Type: 
  Country: None (occurrence: None)
  Receive Date: 20090928
  Receipt Date: 20090921
  Transmission Date: 20100115
  Serious: Yes (Hospitalization)
  Sender: FDA-Public Use
  Company Number: 2009SP026426

PATIENT
  Age: 70 Year
  Sex: Female

DRUGS (1)
  1. PROVENTIL-HFA [Suspect]
     Indication: DRUG USE FOR UNKNOWN INDICATION
     Dosage: ;PO
     Route: 048

REACTIONS (4)
  - ARTHROPATHY [None]
  - DEVICE FAILURE [None]
  - OXYGEN SATURATION DECREASED [None]
  - PRODUCT PACKAGING QUANTITY ISSUE [None]
